FAERS Safety Report 12212225 (Version 1)
Quarter: 2016Q1

REPORT INFORMATION
  Report Type: Other
  Country: US (occurrence: US)
  Receive Date: 20160325
  Receipt Date: 20160325
  Transmission Date: 20160526
  Serious: No
  Sender: FDA-Public Use
  Company Number: US-DEP_02340_2014

PATIENT
  Sex: Female

DRUGS (10)
  1. UNSPECIFIED ASTHMA MEDICATION [Concomitant]
     Indication: ASTHMA
     Dosage: DF
  2. GRALISE [Suspect]
     Active Substance: GABAPENTIN
     Indication: NEURALGIA
     Dosage: TITRATED UP TO 1500 MG, ONCE DAILY
     Route: 048
     Dates: start: 2012, end: 2014
  3. UNSPECIFIED STOMACH MEDICATION [Concomitant]
     Indication: GASTROINTESTINAL DISORDER
     Dosage: DF
  4. GRALISE [Suspect]
     Active Substance: GABAPENTIN
     Indication: NECK PAIN
     Dosage: TITRATED UP TO 1500 MG, ONCE DAILY
     Route: 048
     Dates: start: 2012, end: 2014
  5. UNSPECIFIED ANTIDEPRESSANT [Concomitant]
     Dosage: DF
  6. UNSPECIFIED ALLERGY MEDICATION [Concomitant]
     Indication: HYPERSENSITIVITY
     Dosage: DF
  7. UNSPECIFIED BLOOD PRESSURE MEDICATION [Concomitant]
     Active Substance: UNSPECIFIED INGREDIENT
     Indication: HYPERTENSION
     Dosage: DF
  8. GRALISE [Suspect]
     Active Substance: GABAPENTIN
     Indication: OFF LABEL USE
     Dosage: TITRATED UP TO 1500 MG, ONCE DAILY
     Route: 048
     Dates: start: 2012, end: 2014
  9. UNSPECIFIED THYROID MEDICATION [Concomitant]
     Active Substance: UNSPECIFIED INGREDIENT
     Indication: THYROID DISORDER
     Dosage: DF
  10. UNSPECIFIED SLEEP MEDICATION [Concomitant]
     Indication: SLEEP DISORDER
     Dosage: DF

REACTIONS (1)
  - Inappropriate schedule of drug administration [Recovered/Resolved]

NARRATIVE: CASE EVENT DATE: 2012
